FAERS Safety Report 4961925-1 (Version None)
Quarter: 2006Q2

REPORT INFORMATION
  Report Type: 
  Country: None (occurrence: None)
  Receive Date: 20060404
  Receipt Date: 20050414
  Transmission Date: 20061013
  Serious: Yes (Other)
  Sender: FDA-Public Use
  Company Number: US-MERCK-0504USA02877

PATIENT
  Age: 77 Year
  Sex: Male
  Weight: 105 kg

DRUGS (10)
  1. VIOXX [Suspect]
     Indication: OSTEOARTHRITIS
     Route: 048
     Dates: start: 19990101, end: 20040101
  2. LASIX [Concomitant]
     Route: 065
     Dates: start: 19990101
  3. COUMADIN [Concomitant]
     Route: 065
     Dates: start: 19990101
  4. POTASSIUM CHLORIDE [Concomitant]
     Route: 065
  5. ZOLOFT [Concomitant]
     Route: 065
  6. CARDIZEM [Concomitant]
     Route: 065
     Dates: start: 19990101, end: 20010101
  7. HYTRIN [Concomitant]
     Route: 065
     Dates: start: 19990101, end: 20010101
  8. DIGOXIN [Concomitant]
     Route: 065
     Dates: start: 19990101, end: 20010101
  9. ISOSORBIDE DINITRATE [Concomitant]
     Route: 065
     Dates: start: 19990101, end: 19990101
  10. ASPIRIN [Concomitant]
     Route: 065
     Dates: start: 19900101

REACTIONS (5)
  - ATRIAL FIBRILLATION [None]
  - CARDIAC DISORDER [None]
  - CEREBROVASCULAR ACCIDENT [None]
  - MITRAL VALVE REPLACEMENT [None]
  - OEDEMA PERIPHERAL [None]
